FAERS Safety Report 6687379-5 (Version None)
Quarter: 2010Q2

REPORT INFORMATION
  Report Type: 
  Country: None (occurrence: None)
  Receive Date: 20100416
  Receipt Date: 20100416
  Transmission Date: 20101027
  Serious: Yes (Hospitalization)
  Sender: FDA-Public Use
  Company Number: None

PATIENT
  Age: 43 Year
  Sex: Male
  Weight: 116 kg

DRUGS (12)
  1. SEROQUEL [Suspect]
     Indication: MAJOR DEPRESSION
     Dosage: 50-100MG PO QHS
     Route: 048
     Dates: start: 20050901
  2. SEROQUEL [Suspect]
     Indication: POST-TRAUMATIC STRESS DISORDER
     Dosage: 50-100MG PO QHS
     Route: 048
     Dates: start: 20050901
  3. BENAZEPRIL HYDROCHLORIDE [Concomitant]
  4. DOCUSATE [Concomitant]
  5. NA, [Concomitant]
  6. GABAPENTIN [Concomitant]
  7. METFORMIN [Concomitant]
  8. PROPRANOLOL [Concomitant]
  9. SIMVASTATIN [Concomitant]
  10. BACTRIM DS [Concomitant]
  11. TRAMADOL HCL [Concomitant]
  12. VENLAFAXINE [Concomitant]

REACTIONS (6)
  - BACK PAIN [None]
  - CENTRAL NERVOUS SYSTEM STIMULATION [None]
  - GROIN PAIN [None]
  - NO THERAPEUTIC RESPONSE [None]
  - PROCEDURAL PAIN [None]
  - SURGICAL PROCEDURE REPEATED [None]
